FAERS Safety Report 4309960-0 (Version None)
Quarter: 2004Q1

REPORT INFORMATION
  Report Type: 
  Country: None (occurrence: None)
  Receive Date: 20040303
  Receipt Date: 20040224
  Transmission Date: 20041129
  Serious: Yes (Other)
  Sender: FDA-Public Use
  Company Number: JP-BRISTOL-MYERS SQUIBB COMPANY-12516035

PATIENT
  Age: 35 Year
  Sex: Male

DRUGS (4)
  1. TAXOL [Suspect]
     Indication: LUNG NEOPLASM MALIGNANT
     Route: 042
     Dates: start: 20040127, end: 20040127
  2. PARAPLATIN [Suspect]
     Indication: LUNG NEOPLASM MALIGNANT
     Route: 042
     Dates: start: 20040127, end: 20040127
  3. RADIATION THERAPY [Concomitant]
     Dates: start: 20040122
  4. VOLTAREN [Concomitant]
     Route: 054
     Dates: start: 20040114, end: 20040209

REACTIONS (1)
  - RENAL FAILURE [None]
